FAERS Safety Report 9542316 (Version 1)
Quarter: 2013Q2

REPORT INFORMATION
  Report Type: Spontaneous
  Country: US (occurrence: None)
  Receive Date: 20130524
  Receipt Date: 20130524
  Transmission Date: 20140414
  Serious: No
  Sender: FDA-Public Use
  Company Number: PHEH2013US003882

PATIENT
  Sex: Male
  Weight: 77.6 kg

DRUGS (6)
  1. GILENYA (FINGOLIMOD) CAPSULE, 0.5MG [Suspect]
     Indication: MULTIPLE SCLEROSIS
     Route: 048
  2. ASA (ACETYLSALICYLIC ACID) [Concomitant]
  3. MULTI-VIT (VITAMINS NOS) [Concomitant]
  4. VITAMIN B 12 (CYANOCOBALAMIN) [Concomitant]
  5. FISH OIL (FISH OIL) [Concomitant]
  6. VIT D3 (COLECALCIFEROL) [Concomitant]

REACTIONS (1)
  - Muscle twitching [None]
